FAERS Safety Report 4541814-7 (Version None)
Quarter: 2004Q4

REPORT INFORMATION
  Report Type: 
  Country: None (occurrence: None)
  Receive Date: 20041230
  Receipt Date: 20041223
  Transmission Date: 20050328
  Serious: Yes (Hospitalization)
  Sender: FDA-Public Use
  Company Number: PHRM2004FR03762

PATIENT
  Age: 45 Year
  Sex: Male

DRUGS (2)
  1. LEPONEX [Suspect]
     Indication: SCHIZOPHRENIA
     Dates: start: 19990101
  2. ANTIVIRALS FOR SYSTEMIC USE [Suspect]
     Indication: HIV ANTIBODY POSITIVE

REACTIONS (3)
  - GENERAL PHYSICAL HEALTH DETERIORATION [None]
  - MITOCHONDRIAL TOXICITY [None]
  - PANCREATITIS [None]
